FAERS Safety Report 6427807-3 (Version None)
Quarter: 2009Q4

REPORT INFORMATION
  Report Type: 
  Country: None (occurrence: None)
  Receive Date: 20091104
  Receipt Date: 20091104
  Transmission Date: 20100525
  Serious: Yes (Life-Threatening)
  Sender: FDA-Public Use
  Company Number: None

PATIENT
  Age: 59 Year
  Sex: Female
  Weight: 54.4316 kg

DRUGS (2)
  1. ADVAIR DISKUS 500/50 [Suspect]
     Indication: ASTHMA
     Dosage: 500 MCG FLUTICASONE DIPROPIONATE 72.5 MCG SALMETEROL XINAFOATE 1 INHALATION TWICE A DAY 054
     Route: 055
     Dates: start: 20030101, end: 20090101
  2. ADVAIR DISKUS 500/50 [Suspect]
     Indication: CHRONIC OBSTRUCTIVE PULMONARY DISEASE
     Dosage: 500 MCG FLUTICASONE DIPROPIONATE 72.5 MCG SALMETEROL XINAFOATE 1 INHALATION TWICE A DAY 054
     Route: 055
     Dates: start: 20030101, end: 20090101

REACTIONS (6)
  - BONE NEOPLASM [None]
  - CHEST DISCOMFORT [None]
  - CHEST PAIN [None]
  - DYSPNOEA [None]
  - OBSTRUCTIVE AIRWAYS DISORDER [None]
  - PALPITATIONS [None]
